FAERS Safety Report 9134642 (Version 1)
Quarter: 2013Q1

REPORT INFORMATION
  Report Type: Spontaneous
  Country: CA (occurrence: CA)
  Receive Date: 20130304
  Receipt Date: 20130304
  Transmission Date: 20140127
  Serious: Yes (Death)
  Sender: FDA-Public Use
  Company Number: PHHY2013CA020577

PATIENT
  Age: 76 Year
  Sex: Female

DRUGS (1)
  1. SANDOSTATIN LAR [Suspect]
     Indication: OVARIAN CANCER
     Dosage: 30 MG, EVERY 4 WEEK
     Route: 030
     Dates: start: 20121211, end: 20130207

REACTIONS (1)
  - Death [Fatal]
